FAERS Safety Report 6685955-7 (Version None)
Quarter: 2010Q2

REPORT INFORMATION
  Report Type: 
  Country: None (occurrence: None)
  Receive Date: 20100415
  Receipt Date: 20100415
  Transmission Date: 20101027
  Serious: Yes (Hospitalization)
  Sender: FDA-Public Use
  Company Number: None

PATIENT
  Age: 69 Year
  Sex: Female
  Weight: 62.1 kg

DRUGS (8)
  1. DOCETAXEL [Suspect]
     Indication: NON-SMALL CELL LUNG CANCER
     Dosage: 56.25MG/M2, IV DAY 1 Q3W
     Route: 042
     Dates: start: 20100119
  2. GEMCITABINE HCL [Suspect]
     Indication: NON-SMALL CELL LUNG CANCER
     Dosage: 675MG/M2, IV DAYS1+8 Q3W
     Route: 042
     Dates: start: 20100119
  3. PEGFILGRASTIM [Concomitant]
  4. POTASSIUM CHLORIDE [Concomitant]
  5. VANLAFAXINE [Concomitant]
  6. BMX SOLN [Concomitant]
  7. ALBUTEROL [Concomitant]
  8. WARFARIN SODIUM [Concomitant]

REACTIONS (1)
  - ATRIAL FIBRILLATION [None]
